FAERS Safety Report 14248570 (Version 1)
Quarter: 2017Q4

REPORT INFORMATION
  Report Type: Spontaneous
  Country: GB (occurrence: GB)
  Receive Date: 20171202
  Receipt Date: 20171202
  Transmission Date: 20180321
  Serious: Yes (Disabling)
  Sender: FDA-Public Use
  Company Number: None

PATIENT
  Age: 53 Year
  Sex: Female
  Weight: 70 kg

DRUGS (3)
  1. HYDROCORTISONE. [Suspect]
     Active Substance: HYDROCORTISONE
     Indication: ECZEMA
     Route: 061
     Dates: start: 19780101, end: 20120205
  2. METHOTREXATE. [Concomitant]
     Active Substance: METHOTREXATE
  3. SYNALAR [Suspect]
     Active Substance: FLUOCINOLONE ACETONIDE
     Indication: ECZEMA
     Route: 061
     Dates: start: 19660101, end: 19780101

REACTIONS (11)
  - Steroid withdrawal syndrome [None]
  - Chills [None]
  - Insomnia [None]
  - Skin exfoliation [None]
  - Secretion discharge [None]
  - Alopecia [None]
  - Pruritus [None]
  - Loss of personal independence in daily activities [None]
  - Dermatitis exfoliative [None]
  - Hyperhidrosis [None]
  - Pain [None]

NARRATIVE: CASE EVENT DATE: 20020101
